FAERS Safety Report 7082486-X (Version None)
Quarter: 2010Q3

REPORT INFORMATION
  Report Type: 
  Country: None (occurrence: None)
  Receive Date: 20100929
  Receipt Date: 20100621
  Transmission Date: 20110219
  Serious: No
  Sender: FDA-Public Use
  Company Number: US-WYE-H15798110

PATIENT

DRUGS (1)
  1. PRISTIQ [Suspect]

REACTIONS (6)
  - DISORIENTATION [None]
  - DRUG WITHDRAWAL SYNDROME [None]
  - DYSPHORIA [None]
  - HYPOAESTHESIA FACIAL [None]
  - NAUSEA [None]
  - VISUAL IMPAIRMENT [None]
